FAERS Safety Report 13612974 (Version 1)
Quarter: 2017Q2

REPORT INFORMATION
  Report Type: Other
  Country: GB (occurrence: GB)
  Receive Date: 20170605
  Receipt Date: 20170605
  Transmission Date: 20170830
  Serious: Yes (Hospitalization)
  Sender: FDA-Public Use
  Company Number: GB-RARE DISEASE THERAPEUTICS, INC.-2021549

PATIENT
  Age: 67 Year
  Sex: Male
  Weight: 107.5 kg

DRUGS (1)
  1. PURIXAN [Suspect]
     Active Substance: MERCAPTOPURINE
     Indication: CROHN^S DISEASE
     Dates: start: 20170502, end: 20170505

REACTIONS (4)
  - Arthralgia [Recovered/Resolved]
  - Diarrhoea [Recovering/Resolving]
  - Off label use [None]
  - Rectal haemorrhage [Recovered/Resolved]

NARRATIVE: CASE EVENT DATE: 20170502
